FAERS Safety Report 22980371 (Version 6)
Quarter: 2025Q1

REPORT INFORMATION
  Report Type: Spontaneous
  Country: US (occurrence: US)
  Receive Date: 20230925
  Receipt Date: 20250116
  Transmission Date: 20250408
  Serious: No
  Sender: BIOGEN
  Company Number: US-BIOGEN-2023BI01223707

PATIENT
  Sex: Female

DRUGS (2)
  1. TYSABRI [Suspect]
     Active Substance: NATALIZUMAB
     Indication: Multiple sclerosis
     Route: 050
     Dates: start: 20160708
  2. TYSABRI [Suspect]
     Active Substance: NATALIZUMAB
     Route: 050

REACTIONS (7)
  - Prescribed underdose [Not Recovered/Not Resolved]
  - Emotional distress [Unknown]
  - Lung disorder [Unknown]
  - Visual impairment [Recovered/Resolved]
  - Anxiety [Unknown]
  - Dizziness [Recovered/Resolved]
  - Headache [Recovered/Resolved]
